FAERS Safety Report 25406654 (Version 1)
Quarter: 2025Q2

REPORT INFORMATION
  Report Type: Spontaneous
  Country: CN (occurrence: CN)
  Receive Date: 20250606
  Receipt Date: 20250606
  Transmission Date: 20250717
  Serious: Yes (Other)
  Sender: CHEPLAPHARM
  Company Number: CN-CHEPLA-2025006948

PATIENT
  Age: 67 Year
  Sex: Male
  Weight: 57 kg

DRUGS (16)
  1. GEMCITABINE [Suspect]
     Active Substance: GEMCITABINE
     Indication: Bile duct cancer stage IV
     Dates: start: 20210630, end: 20210630
  2. GEMCITABINE [Suspect]
     Active Substance: GEMCITABINE
     Indication: Bile duct cancer stage IV
     Dates: start: 20210721, end: 20210721
  3. CAPECITABINE [Suspect]
     Active Substance: CAPECITABINE
     Indication: Bile duct cancer stage IV
     Dates: start: 2021
  4. CISPLATIN [Suspect]
     Active Substance: CISPLATIN
     Indication: Bile duct cancer stage IV
     Dates: start: 20210630, end: 20210630
  5. CISPLATIN [Suspect]
     Active Substance: CISPLATIN
     Indication: Bile duct cancer stage IV
     Dates: start: 20210721, end: 20210721
  6. OXALIPLATIN [Suspect]
     Active Substance: OXALIPLATIN
     Indication: Bile duct cancer stage IV
     Dates: start: 2021
  7. CATEQUENTINIB [Suspect]
     Active Substance: CATEQUENTINIB
     Indication: Bile duct cancer stage IV
     Dosage: D1-14, EVERY 3 WEEKS
     Route: 048
     Dates: start: 20210922
  8. CATEQUENTINIB [Suspect]
     Active Substance: CATEQUENTINIB
     Indication: Bile duct cancer stage IV
     Dosage: D1-14, EVERY 3 WEEKS
     Route: 048
     Dates: start: 20211022
  9. TORIPALIMAB [Suspect]
     Active Substance: TORIPALIMAB
     Indication: Bile duct cancer stage IV
     Dosage: ONCE EVERY 3 WEEKS
     Dates: start: 20210922
  10. TORIPALIMAB [Suspect]
     Active Substance: TORIPALIMAB
     Indication: Bile duct cancer stage IV
     Dosage: ONCE EVERY 3 WEEKS
     Dates: start: 20211022
  11. ENTECAVIR [Concomitant]
     Active Substance: ENTECAVIR
     Indication: Hepatitis E
  12. ENTECAVIR [Concomitant]
     Active Substance: ENTECAVIR
     Indication: Hepatitis B
  13. DALTEPARIN [Concomitant]
     Active Substance: DALTEPARIN
  14. ASPIRIN [Concomitant]
     Active Substance: ASPIRIN
  15. CLOPIDOGREL [Concomitant]
     Active Substance: CLOPIDOGREL BISULFATE
  16. ATORVASTATIN [Concomitant]
     Active Substance: ATORVASTATIN

REACTIONS (4)
  - Neutropenia [Unknown]
  - Escherichia sepsis [Unknown]
  - Cerebral infarction [Recovering/Resolving]
  - Off label use [Unknown]

NARRATIVE: CASE EVENT DATE: 20210101
